FAERS Safety Report 24071469 (Version 1)
Quarter: 2024Q3

REPORT INFORMATION
  Report Type: Report from Study
  Country: DE (occurrence: DE)
  Receive Date: 20240710
  Receipt Date: 20240710
  Transmission Date: 20241017
  Serious: No
  Sender: ROCHE
  Company Number: DE-ROCHE-3518522

PATIENT
  Age: 3 Year
  Sex: Male
  Weight: 15.2 kg

DRUGS (1)
  1. EVRYSDI [Suspect]
     Active Substance: RISDIPLAM
     Indication: Spinal muscular atrophy
     Dosage: ON 16/FEB/2024, HE RECEIVED LAST DOSE OF RISDIPLAM
     Route: 048
     Dates: start: 20221008

REACTIONS (5)
  - Skeletal injury [Unknown]
  - Fall [Unknown]
  - Bone contusion [Unknown]
  - Clavicle fracture [Unknown]
  - Dermatitis atopic [Unknown]

NARRATIVE: CASE EVENT DATE: 20240216
